FAERS Safety Report 9914376 (Version 1)
Quarter: 2014Q1

REPORT INFORMATION
  Report Type: Spontaneous
  Country: US (occurrence: US)
  Receive Date: 20140220
  Receipt Date: 20140220
  Transmission Date: 20141002
  Serious: Yes (Other)
  Sender: FDA-Public Use
  Company Number: US-009507513-1402USA008535

PATIENT
  Age: 24 Year
  Sex: Female

DRUGS (3)
  1. ISENTRESS [Suspect]
     Dosage: TOTAL DAILY DOSE: 800 MG/DAY
     Route: 048
     Dates: start: 20130930
  2. TRUVADA [Suspect]
     Dosage: TOTAL DAILY DOSE: 1 TAB/CAP PER DAY
     Route: 048
     Dates: start: 20130930
  3. RETROVIR [Suspect]
     Dosage: TOTAL DAILY DOSE: 600 MG/DAY
     Route: 048
     Dates: start: 20130930, end: 20131008

REACTIONS (3)
  - Abortion spontaneous [Unknown]
  - Maternal exposure during pregnancy [Recovered/Resolved]
  - Shortened cervix [Unknown]
